FAERS Safety Report 7270683-X (Version None)
Quarter: 2011Q1

REPORT INFORMATION
  Report Type: 
  Country: None (occurrence: None)
  Receive Date: 20110202
  Receipt Date: 20110126
  Transmission Date: 20110831
  Serious: Yes (Other)
  Sender: FDA-Public Use
  Company Number: B0674193A

PATIENT
  Sex: Female
  Weight: 40 kg

DRUGS (8)
  1. PARIET [Concomitant]
     Dosage: 10MG PER DAY
     Route: 048
  2. RIZE [Concomitant]
     Dosage: 10MG PER DAY
     Route: 048
  3. METHYCOBAL [Concomitant]
     Dosage: 1500MG PER DAY
     Route: 048
  4. GASTROM [Concomitant]
     Dosage: 3G PER DAY
     Route: 048
  5. XELODA [Suspect]
     Dosage: 1800MG PER DAY
     Route: 048
     Dates: start: 20100417, end: 20100712
  6. LIPITOR [Concomitant]
     Dosage: 10MG PER DAY
     Route: 048
  7. TYKERB [Suspect]
     Indication: BREAST CANCER
     Dosage: 1250MG PER DAY
     Route: 048
     Dates: start: 20100417, end: 20100712
  8. HYPEN [Concomitant]
     Dosage: 400MG PER DAY
     Route: 048

REACTIONS (3)
  - PALMAR-PLANTAR ERYTHRODYSAESTHESIA SYNDROME [None]
  - BLISTER [None]
  - DERMATITIS [None]
